FAERS Safety Report 8117467-8 (Version None)
Quarter: 2012Q1

REPORT INFORMATION
  Report Type: 
  Country: None (occurrence: None)
  Receive Date: 20120207
  Receipt Date: 20120127
  Transmission Date: 20120608
  Serious: Yes (Other)
  Sender: FDA-Public Use
  Company Number: US-BIOGENIDEC-2012BI001215

PATIENT
  Age: 39 Year
  Sex: Female

DRUGS (4)
  1. TYSABRI [Suspect]
     Indication: MULTIPLE SCLEROSIS
     Route: 042
     Dates: start: 20111027
  2. METHADONE HCL [Concomitant]
     Indication: OSTEONECROSIS
     Dates: start: 20080301
  3. MORPHINE [Concomitant]
     Indication: OSTEONECROSIS
     Dates: start: 20080301
  4. LORTAB [Concomitant]
     Indication: BURSITIS

REACTIONS (2)
  - OSTEONECROSIS [None]
  - INSOMNIA [None]
